FAERS Safety Report 7630720 (Version 6)
Quarter: 2012Q4

REPORT INFORMATION
  Report Type: Report from Study
  Country: US (occurrence: US)
  Receive Date: 20101015
  Receipt Date: 20121115
  Transmission Date: 20130627
  Serious: Yes (Hospitalization)
  Sender: FDA-Public Use
  Company Number: US-JNJFOC-20101002516

PATIENT
  Age: 14 Year
  Sex: Female
  Weight: 42.2 kg

DRUGS (3)
  1. REMICADE [Suspect]
     Indication: COLITIS
     Route: 042
     Dates: start: 201001
  2. PREDNISONE [Concomitant]
  3. PROBIOTICS [Concomitant]

REACTIONS (1)
  - Colitis [Recovered/Resolved]
